FAERS Safety Report 5517950-5 (Version None)
Quarter: 2007Q4

REPORT INFORMATION
  Report Type: 
  Country: None (occurrence: None)
  Receive Date: 20071115
  Receipt Date: 20071106
  Transmission Date: 20080405
  Serious: Yes (Other)
  Sender: FDA-Public Use
  Company Number: PHEH2007US06681

PATIENT
  Age: 59 Year
  Sex: Female
  Weight: 57.142 kg

DRUGS (21)
  1. ZELNORM [Suspect]
     Indication: IRRITABLE BOWEL SYNDROME
     Dosage: 6MG QD TO BID
     Route: 048
     Dates: start: 20021002, end: 20070407
  2. MEDROL [Concomitant]
     Dates: start: 20050315
  3. MAXAIR MDI [Concomitant]
  4. FLEXERIL [Concomitant]
     Indication: BACK PAIN
     Dosage: 5 MG, PRN
  5. DARVOCET [Concomitant]
     Indication: FIBROMYALGIA
     Dosage: 500 UNK, PRN
  6. PLAVIX [Concomitant]
     Dosage: 75 MG, QOD
  7. SINGULAIR [Concomitant]
     Indication: ASTHMA
  8. PREVACID [Concomitant]
     Indication: GASTROOESOPHAGEAL REFLUX DISEASE
     Dosage: 30 MG, BID
     Dates: start: 20020601
  9. DIOVAN HCT [Concomitant]
     Dosage: 160/12.5 QD
  10. ACTONEL [Concomitant]
     Dosage: UNK, QW
  11. DETROL [Concomitant]
     Dosage: 2 MG, QD
  12. LUNESTA [Concomitant]
  13. AXERT [Concomitant]
  14. MIRALAX [Concomitant]
  15. PLAQUENIL [Concomitant]
  16. ZOLOFT [Concomitant]
  17. ADVAIR DISKUS 100/50 [Concomitant]
  18. VAGIFEM [Concomitant]
  19. TOPAMAX [Concomitant]
  20. SPIRIVA [Concomitant]
  21. TESTOSTERONE [Concomitant]
     Route: 067

REACTIONS (10)
  - CHEST DISCOMFORT [None]
  - CHEST PAIN [None]
  - DIZZINESS [None]
  - FIBROMUSCULAR DYSPLASIA [None]
  - HEART RATE ABNORMAL [None]
  - HYPOAESTHESIA [None]
  - LOSS OF CONSCIOUSNESS [None]
  - NERVOUS SYSTEM DISORDER [None]
  - SPEECH DISORDER [None]
  - STRESS [None]
